FAERS Safety Report 8606791 (Version 2)
Quarter: 2013Q3

REPORT INFORMATION
  Report Type: Spontaneous
  Country: US (occurrence: US)
  Receive Date: 20120611
  Receipt Date: 20130720
  Transmission Date: 20140515
  Serious: Yes (Hospitalization, Disabling)
  Sender: FDA-Public Use
  Company Number: US-ASTRAZENECA-2012SE35879

PATIENT
  Age: 58 Year
  Sex: Female

DRUGS (1)
  1. NEXIUM [Suspect]
     Indication: GASTROOESOPHAGEAL REFLUX DISEASE
     Dosage: 1 OR 2 TIMES PER DAY
     Route: 048
     Dates: start: 2008

REACTIONS (7)
  - Arthralgia [Unknown]
  - Back disorder [Unknown]
  - Back pain [Unknown]
  - Osteoporosis [Unknown]
  - Arthropathy [Unknown]
  - Bone disorder [Unknown]
  - Multiple fractures [Unknown]
